FAERS Safety Report 10521488 (Version 1)
Quarter: 2014Q4

REPORT INFORMATION
  Report Type: Spontaneous
  Country: US (occurrence: None)
  Receive Date: 20141014
  Receipt Date: 20141014
  Transmission Date: 20150528
  Serious: No
  Sender: FDA-Public Use
  Company Number: None

PATIENT

DRUGS (2)
  1. EPIPEN [Suspect]
     Active Substance: EPINEPHRINE
  2. PHENTOLAMINE MESYLATE. [Suspect]
     Active Substance: PHENTOLAMINE MESYLATE

REACTIONS (4)
  - Vasoconstriction [None]
  - Accidental exposure to product [None]
  - Skin discolouration [None]
  - Injury associated with device [None]
